FAERS Safety Report 21683759 (Version 1)
Quarter: 2022Q4

REPORT INFORMATION
  Report Type: Spontaneous
  Country: US (occurrence: US)
  Receive Date: 20221205
  Receipt Date: 20221205
  Transmission Date: 20230112
  Serious: Yes (Other)
  Sender: FDA-Public Use
  Company Number: US-BAXTER-2022BAX025746

PATIENT
  Age: 20 Year
  Sex: Male

DRUGS (11)
  1. CYCLOPHOSPHAMIDE [Suspect]
     Active Substance: CYCLOPHOSPHAMIDE
     Indication: Primary mediastinal large B-cell lymphoma
     Dosage: 6 CYCLES OF DOSE-ADJUSTED EPOCH-R CHEMOTHERAPY
     Route: 065
  2. MESNA [Suspect]
     Active Substance: MESNA
     Indication: Primary mediastinal large B-cell lymphoma recurrent
     Route: 065
  3. DOXORUBICIN [Suspect]
     Active Substance: DOXORUBICIN
     Indication: Primary mediastinal large B-cell lymphoma
     Dosage: HYDROXY, 6 CYCLES OF DOSE-ADJUSTED EPOCH-R CHEMOTHERAPY
     Route: 065
  4. PREDNISONE [Suspect]
     Active Substance: PREDNISONE
     Indication: Primary mediastinal large B-cell lymphoma
     Dosage: 6 CYCLES OF DOSE-ADJUSTED EPOCH-R CHEMOTHERAPY
     Route: 065
  5. RITUXIMAB [Suspect]
     Active Substance: RITUXIMAB
     Indication: Primary mediastinal large B-cell lymphoma
     Dosage: 6 CYCLES OF DOSE-ADJUSTED EPOCH-R CHEMOTHERAPY
     Route: 065
  6. ETOPOSIDE [Suspect]
     Active Substance: ETOPOSIDE
     Indication: Primary mediastinal large B-cell lymphoma
     Dosage: 6 CYCLES OF DOSE-ADJUSTED EPOCH-R CHEMOTHERAPY
     Route: 065
  7. ONCOVIN [Suspect]
     Active Substance: VINCRISTINE SULFATE
     Indication: Primary mediastinal large B-cell lymphoma
     Dosage: 6 CYCLES OF DOSE-ADJUSTED EPOCH-R CHEMOTHERAPY
     Route: 065
  8. BRENTUXIMAB [Concomitant]
     Active Substance: BRENTUXIMAB
     Indication: Primary mediastinal large B-cell lymphoma recurrent
     Dosage: TWO INFUSIONS
     Route: 065
  9. IFOSFAMIDE [Concomitant]
     Active Substance: IFOSFAMIDE
     Indication: Primary mediastinal large B-cell lymphoma recurrent
     Dosage: TWO CYCLES OF ICE CHEMOTHERAPY
     Route: 065
  10. CARBOPLATIN [Concomitant]
     Active Substance: CARBOPLATIN
     Indication: Primary mediastinal large B-cell lymphoma recurrent
     Dosage: TWO CYCLES OF ICE CHEMOTHERAPY
     Route: 065
  11. ETOPOSIDE [Concomitant]
     Active Substance: ETOPOSIDE
     Indication: Primary mediastinal large B-cell lymphoma recurrent
     Dosage: TWO CYCLES OF ICE CHEMOTHERAPY
     Route: 065

REACTIONS (2)
  - Primary mediastinal large B-cell lymphoma recurrent [Unknown]
  - Neuropathy peripheral [Unknown]
